FAERS Safety Report 13685042 (Version 3)
Quarter: 2017Q3

REPORT INFORMATION
  Report Type: Spontaneous
  Country: GB (occurrence: GB)
  Receive Date: 20170623
  Receipt Date: 20170707
  Transmission Date: 20171127
  Serious: Yes (Hospitalization, Other)
  Sender: FDA-Public Use
  Company Number: GB-ABBVIE-17P-167-2016877-00

PATIENT
  Sex: Male

DRUGS (3)
  1. EPILIM [Suspect]
     Active Substance: VALPROATE SODIUM
     Route: 048
     Dates: start: 201705
  2. EPILIM [Suspect]
     Active Substance: VALPROATE SODIUM
     Indication: CEREBROVASCULAR ACCIDENT
     Route: 048
  3. EPILIM [Suspect]
     Active Substance: VALPROATE SODIUM
     Route: 048

REACTIONS (8)
  - Fatigue [Unknown]
  - Somnolence [Not Recovered/Not Resolved]
  - Drug level increased [Unknown]
  - Decreased interest [Unknown]
  - Pleural effusion [Unknown]
  - Seizure [Unknown]
  - Off label use [Unknown]
  - Pulmonary oedema [Unknown]

NARRATIVE: CASE EVENT DATE: 2017
